FAERS Safety Report 17657485 (Version 3)
Quarter: 2020Q2

REPORT INFORMATION
  Report Type: Spontaneous
  Country: BG (occurrence: BG)
  Receive Date: 20200410
  Receipt Date: 20200515
  Transmission Date: 20200713
  Serious: Yes (Other)
  Sender: FDA-Public Use
  Company Number: BG-ALLERGAN-2014886US

PATIENT
  Sex: Female

DRUGS (2)
  1. LUMIGAN [Suspect]
     Active Substance: BIMATOPROST
     Indication: EXFOLIATION GLAUCOMA
     Dosage: 1 GTT, QHS
     Route: 047
     Dates: start: 2015
  2. COSOPT [Suspect]
     Active Substance: DORZOLAMIDE HYDROCHLORIDE\TIMOLOL MALEATE
     Indication: EXFOLIATION GLAUCOMA

REACTIONS (2)
  - Choroidal effusion [Recovered/Resolved]
  - Wrong product administered [Unknown]
